FAERS Safety Report 17191313 (Version 2)
Quarter: 2020Q1

REPORT INFORMATION
  Report Type: Spontaneous
  Country: FR (occurrence: FR)
  Receive Date: 20191223
  Receipt Date: 20200324
  Transmission Date: 20200409
  Serious: Yes (Other)
  Sender: FDA-Public Use
  Company Number: NVSC2019FR075723

PATIENT
  Age: 13 Month
  Sex: Female

DRUGS (13)
  1. BEVACIZUMAB. [Suspect]
     Active Substance: BEVACIZUMAB
     Dosage: UNK ((}6 CYCLES), BIW)
     Route: 042
  2. IRINOTECAN HYDROCHLORIDE. [Suspect]
     Active Substance: IRINOTECAN HYDROCHLORIDE
     Indication: BENIGN LUNG NEOPLASM
     Dosage: UNK, Q3W
     Route: 042
     Dates: start: 201604, end: 201609
  3. BEVACIZUMAB. [Suspect]
     Active Substance: BEVACIZUMAB
     Indication: BENIGN LUNG NEOPLASM
     Dosage: UNK, Q2W
     Route: 065
  4. TEMOZOLOMIDE. [Suspect]
     Active Substance: TEMOZOLOMIDE
     Indication: BENIGN LUNG NEOPLASM
     Dosage: UNK, QMO
     Route: 065
  5. TOPOTECAN [Suspect]
     Active Substance: TOPOTECAN HYDROCHLORIDE
     Dosage: UNK (DAY 1 - D5 )
     Route: 065
     Dates: start: 201801, end: 201807
  6. TOPOTECAN [Suspect]
     Active Substance: TOPOTECAN HYDROCHLORIDE
     Indication: BENIGN LUNG NEOPLASM
     Dosage: UNK UNK, QMO
     Route: 065
  7. TEMOZOLOMIDE. [Suspect]
     Active Substance: TEMOZOLOMIDE
     Dosage: UNK (MONTHLY (}13 CYCLES))
     Route: 065
  8. TOPOTECAN [Suspect]
     Active Substance: TOPOTECAN HYDROCHLORIDE
     Dosage: UNK (MONTHLY(}13 CYCLES))
     Route: 065
  9. BEVACIZUMAB. [Suspect]
     Active Substance: BEVACIZUMAB
     Dosage: UNK
     Route: 042
     Dates: start: 201807, end: 201807
  10. VINCRISTINE [Suspect]
     Active Substance: VINCRISTINE
     Indication: BENIGN LUNG NEOPLASM
     Dosage: UNK (D1, Q3W )
     Route: 065
     Dates: start: 201604, end: 201609
  11. DACTINOMYCIN [Suspect]
     Active Substance: DACTINOMYCIN
     Indication: BENIGN LUNG NEOPLASM
     Dosage: UNK (D1)
     Route: 065
     Dates: start: 201604, end: 201609
  12. IFOSFAMIDE. [Suspect]
     Active Substance: IFOSFAMIDE
     Indication: BENIGN LUNG NEOPLASM
     Dosage: UNK (DAY1, D2, Q3W)
     Route: 065
     Dates: start: 201604, end: 201609
  13. TEMOZOLOMIDE. [Suspect]
     Active Substance: TEMOZOLOMIDE
     Dosage: UNK (DAY 1 - D5)
     Route: 042
     Dates: start: 201801, end: 201807

REACTIONS (6)
  - Product use in unapproved indication [Unknown]
  - Neutropenia [Not Recovered/Not Resolved]
  - Toxicity to various agents [Unknown]
  - Renal disorder [Unknown]
  - Vomiting [Not Recovered/Not Resolved]
  - Nausea [Not Recovered/Not Resolved]

NARRATIVE: CASE EVENT DATE: 2016
